FAERS Safety Report 5822262-6 (Version None)
Quarter: 2008Q3

REPORT INFORMATION
  Report Type: 
  Country: None (occurrence: None)
  Receive Date: 20080725
  Receipt Date: 20080714
  Transmission Date: 20090109
  Serious: Yes (Hospitalization)
  Sender: FDA-Public Use
  Company Number: IE-ELI_LILLY_AND_COMPANY-IE200807001312

PATIENT
  Sex: Female
  Weight: 70 kg

DRUGS (2)
  1. CYMBALTA [Suspect]
     Indication: DEPRESSION
     Dosage: 30 MG, UNK
     Route: 048
     Dates: start: 20080124, end: 20080208
  2. ELTROXIN [Concomitant]
     Dosage: 100 UG, UNKNOWN
     Route: 048
     Dates: start: 20030101

REACTIONS (1)
  - JAUNDICE [None]
